FAERS Safety Report 10732132 (Version 1)
Quarter: 2015Q1

REPORT INFORMATION
  Report Type: Spontaneous
  Country: US (occurrence: None)
  Receive Date: 20150120
  Receipt Date: 20150120
  Transmission Date: 20150721
  Serious: Yes (Death)
  Sender: FDA-Public Use
  Company Number: 2015010032

PATIENT
  Age: 34 Year
  Sex: Female

DRUGS (5)
  1. ZOLPIDEM (ZOLPIDEM) [Suspect]
     Active Substance: ZOLPIDEM TARTRATE
  2. HYDROCODONE BITARTRATE AND ACETAMINOPHEN [Suspect]
     Active Substance: ACETAMINOPHEN\HYDROCODONE BITARTRATE
  3. ALPRAZOLAM (ALPRAZOLAM) [Suspect]
     Active Substance: ALPRAZOLAM
  4. MORPHINE [Suspect]
     Active Substance: MORPHINE
  5. DIPHENHYDRAMINE (DIPHENHYDRAMINE) [Suspect]
     Active Substance: DIPHENHYDRAMINE

REACTIONS (1)
  - Death [None]

NARRATIVE: CASE EVENT DATE: 2013
